FAERS Safety Report 9240035 (Version 6)
Quarter: 2016Q1

REPORT INFORMATION
  Report Type: Report from Study
  Country: US (occurrence: US)
  Receive Date: 20130418
  Receipt Date: 20160217
  Transmission Date: 20160526
  Serious: Yes (Death, Hospitalization, Other)
  Sender: FDA-Public Use
  Company Number: US-MILLENNIUM PHARMACEUTICALS, INC.-2013-02745

PATIENT
  Age: 12 Year
  Sex: Female
  Weight: 70 kg

DRUGS (6)
  1. CYTARABINE. [Suspect]
     Active Substance: CYTARABINE
     Dosage: 176 MG, CYCLIC
     Route: 042
     Dates: start: 20130404, end: 20130408
  2. VELCADE [Suspect]
     Active Substance: BORTEZOMIB
     Indication: ACUTE MYELOID LEUKAEMIA
     Dosage: 2.29 MG, CYCLIC
     Route: 040
     Dates: start: 20130404, end: 20130411
  3. ETOPOSIDE. [Suspect]
     Active Substance: ETOPOSIDE
     Indication: ACUTE MYELOID LEUKAEMIA
     Dosage: 176 MG, CYCLIC
     Route: 042
     Dates: start: 20130404, end: 20130408
  4. DAUNORUBICIN HYDROCHLORIDE. [Suspect]
     Active Substance: DAUNORUBICIN HYDROCHLORIDE
     Indication: ACUTE MYELOID LEUKAEMIA
     Dosage: 88 MG, CYCLIC
     Route: 042
     Dates: start: 20130404, end: 20130408
  5. CYTARABINE. [Suspect]
     Active Substance: CYTARABINE
     Indication: ACUTE MYELOID LEUKAEMIA
     Dosage: 70 MG, CYCLIC
     Route: 037
     Dates: start: 20130404, end: 20130412
  6. FLUCONAZOLE. [Concomitant]
     Active Substance: FLUCONAZOLE
     Indication: PROPHYLAXIS

REACTIONS (9)
  - Cardiac failure [Unknown]
  - Cardiac failure [Fatal]
  - Sinus tachycardia [Recovered/Resolved with Sequelae]
  - Hypersensitivity [Recovering/Resolving]
  - Peripheral sensory neuropathy [Recovering/Resolving]
  - Hyponatraemia [Recovered/Resolved]
  - Alanine aminotransferase increased [Recovering/Resolving]
  - Hypotension [Recovered/Resolved]
  - Aspartate aminotransferase increased [Recovering/Resolving]

NARRATIVE: CASE EVENT DATE: 20130404
